FAERS Safety Report 20334776 (Version 1)
Quarter: 2022Q1

REPORT INFORMATION
  Report Type: Spontaneous
  Country: DE (occurrence: None)
  Receive Date: 20220114
  Receipt Date: 20220114
  Transmission Date: 20220423
  Serious: Yes (Death, Other)
  Sender: FDA-Public Use
  Company Number: DE-Hikma Pharmaceuticals USA Inc.-DE-H14001-22-00164

PATIENT
  Age: 13 Year
  Sex: Female

DRUGS (18)
  1. ETOPOSIDE [Suspect]
     Active Substance: ETOPOSIDE
     Indication: Myeloproliferative neoplasm
     Dosage: UNKNOWN
     Route: 065
  2. ETOPOSIDE [Suspect]
     Active Substance: ETOPOSIDE
     Indication: Malignant lymphoid neoplasm
  3. ETOPOSIDE [Suspect]
     Active Substance: ETOPOSIDE
     Indication: Eosinophilia
  4. HYDROXYUREA [Suspect]
     Active Substance: HYDROXYUREA
     Indication: Myeloproliferative neoplasm
     Dosage: UNKNOWN
     Route: 065
  5. HYDROXYUREA [Suspect]
     Active Substance: HYDROXYUREA
     Indication: Malignant lymphoid neoplasm
  6. HYDROXYUREA [Suspect]
     Active Substance: HYDROXYUREA
     Indication: Eosinophilia
  7. IDARUBICIN [Suspect]
     Active Substance: IDARUBICIN
     Indication: Myeloproliferative neoplasm
     Dosage: UNKNOWN
     Route: 065
  8. IDARUBICIN [Suspect]
     Active Substance: IDARUBICIN
     Indication: Malignant lymphoid neoplasm
  9. IDARUBICIN [Suspect]
     Active Substance: IDARUBICIN
     Indication: Eosinophilia
  10. VINCRISTINE [Suspect]
     Active Substance: VINCRISTINE
     Indication: Myeloproliferative neoplasm
     Dosage: UNKNOWN
     Route: 065
  11. VINCRISTINE [Suspect]
     Active Substance: VINCRISTINE
     Indication: Malignant lymphoid neoplasm
  12. VINCRISTINE [Suspect]
     Active Substance: VINCRISTINE
     Indication: Eosinophilia
  13. PREDNISONE [Suspect]
     Active Substance: PREDNISONE
     Indication: Myeloproliferative neoplasm
     Dosage: UNKNOWN
     Route: 065
  14. PREDNISONE [Suspect]
     Active Substance: PREDNISONE
     Indication: Malignant lymphoid neoplasm
  15. PREDNISONE [Suspect]
     Active Substance: PREDNISONE
     Indication: Eosinophilia
  16. CYTARABINE [Suspect]
     Active Substance: CYTARABINE
     Indication: Myeloproliferative neoplasm
     Dosage: UNKNOWN
     Route: 065
  17. CYTARABINE [Suspect]
     Active Substance: CYTARABINE
     Indication: Malignant lymphoid neoplasm
  18. CYTARABINE [Suspect]
     Active Substance: CYTARABINE
     Indication: Eosinophilia

REACTIONS (2)
  - Cardiac failure [Fatal]
  - Respiratory failure [Fatal]
